FAERS Safety Report 8920340 (Version 3)
Quarter: 2013Q2

REPORT INFORMATION
  Report Type: Report from Study
  Country: MX (occurrence: MX)
  Receive Date: 20121122
  Receipt Date: 20130614
  Transmission Date: 20140414
  Serious: Yes (Other)
  Sender: FDA-Public Use
  Company Number: MX-PFIZER INC-2012288133

PATIENT
  Age: 4 Year
  Sex: Male
  Weight: 17.6 kg

DRUGS (2)
  1. MOROCTOCOG ALFA [Suspect]
     Indication: HAEMOPHILIA
     Dosage: 341 IU, UNK
     Route: 042
     Dates: start: 20120411, end: 20120613
  2. RANITIDINE [Concomitant]
     Indication: GASTRITIS PROPHYLAXIS
     Dosage: 20 MG, 2X/DAY
     Route: 048
     Dates: start: 20120531, end: 20120603

REACTIONS (1)
  - Factor VIII inhibition [Unknown]
